FAERS Safety Report 17107756 (Version 5)
Quarter: 2021Q4

REPORT INFORMATION
  Report Type: Spontaneous
  Country: US (occurrence: US)
  Receive Date: 20191203
  Receipt Date: 20211228
  Transmission Date: 20220303
  Serious: Yes (Hospitalization, Other)
  Sender: FDA-Public Use
  Company Number: US-PFIZER INC-2019483727

PATIENT
  Sex: Male
  Weight: 106.58 kg

DRUGS (33)
  1. CAVERJECT [Suspect]
     Active Substance: ALPROSTADIL
     Indication: Erectile dysfunction
     Dosage: UNK, WEEKLY
     Dates: start: 199601
  2. CAVERJECT [Suspect]
     Active Substance: ALPROSTADIL
     Dosage: 10 UG, WEEKLY
     Route: 017
  3. CAVERJECT [Suspect]
     Active Substance: ALPROSTADIL
     Dosage: UNK, WEEKLY (INSTRUCTIONS: .03- .06 WEEKLY ON SATURDAY)
  4. CAVERJECT [Suspect]
     Active Substance: ALPROSTADIL
     Dosage: .05 TO .06 ONCE WEEKLY
  5. AMOXIL [Concomitant]
     Active Substance: AMOXICILLIN
     Dosage: 2000 MG, UNK (TAKE 4 TABS ONE HOUR BEFORE DENTAL APPT )
     Route: 048
  6. ASPIRIN [Concomitant]
     Active Substance: ASPIRIN
     Dosage: 325 MG, DAILY(TAKE 325 MG BY MOUTH DAILY (WITH LUNCH))
     Route: 048
  7. CALCIUM CITRATE [Concomitant]
     Active Substance: CALCIUM CITRATE
     Dosage: 500 MG, DAILY(TAKE 500 MG BY MOUTH DAILY (WITH LUNCH))
     Route: 048
  8. CYCLOSPORINE [Concomitant]
     Active Substance: CYCLOSPORINE
     Indication: Heart transplant
     Dosage: 75 MG, 2X/DAY
     Route: 048
  9. EDEX [Concomitant]
     Active Substance: ALPROSTADIL
     Indication: Erectile dysfunction
     Dosage: UNK(INJECT 0.25 - 0.75 ML (5 - 15 MCG) AS DIRECTED)
  10. FERROUS SULFATE [Concomitant]
     Active Substance: FERROUS SULFATE
     Indication: Iron deficiency
     Dosage: 325 MG, DAILY(TAKE 1 TABLET (325 MG) BY MOUTH DAILY (WITH BREAKFAST))
     Route: 048
  11. FLAXSEED [Concomitant]
     Active Substance: FLAX SEED
     Indication: Hyperlipidaemia
     Dosage: 1000 MG, 3X/DAY
     Route: 048
  12. INSULIN NOS [Concomitant]
     Active Substance: INSULIN NOS
     Indication: Organic erectile dysfunction
     Dosage: UNK, AS NEEDED (U 100 1 ML MISC, USE AS NEEDED UP TO 8 TIMES PER MONTH )
  13. LASIX [Concomitant]
     Active Substance: FUROSEMIDE
     Indication: Heart transplant
     Dosage: 40 MG, 2X/DAY (TAKE 40 MG IN THE MORNING, AND 40 MG AT NOON)
     Route: 048
  14. LOVAZA [Concomitant]
     Active Substance: OMEGA-3-ACID ETHYL ESTERS
     Indication: Hypertriglyceridaemia
     Dosage: 1 G, 2X/DAY
     Route: 048
  15. MYCOPHENOLIC ACID [Concomitant]
     Active Substance: MYCOPHENOLIC ACID
     Indication: Heart transplant
     Dosage: 500 MG, 2X/DAY
     Route: 048
  16. MYRBETRIQ [Concomitant]
     Active Substance: MIRABEGRON
     Indication: Mixed incontinence
     Dosage: 50 MG, DAILY
     Route: 048
  17. MYRBETRIQ [Concomitant]
     Active Substance: MIRABEGRON
     Indication: Pollakiuria
  18. PEPCID [Concomitant]
     Active Substance: FAMOTIDINE
     Dosage: 20 MG, 2X/DAY
     Route: 048
  19. PRALUENT [Concomitant]
     Active Substance: ALIROCUMAB
     Indication: Drug intolerance
     Dosage: UNK (INJECT 1 ML (150 MG) SUBCUTANEOUS EVERY 14 DAYS )
     Route: 058
  20. PRAVACHOL [Concomitant]
     Active Substance: PRAVASTATIN SODIUM
     Indication: Hyperlipidaemia
     Dosage: UNK, WEEKLY (0.5 TABLETS)
     Route: 048
  21. PRINIVIL [Concomitant]
     Active Substance: LISINOPRIL
     Indication: Secondary hypertension
     Dosage: 5 MG, DAILY
     Route: 048
  22. PRINIVIL [Concomitant]
     Active Substance: LISINOPRIL
     Indication: Renal disorder
  23. RESTASIS [Concomitant]
     Active Substance: CYCLOSPORINE
     Indication: Hyperparathyroidism secondary
     Dosage: 1 GTT, 2X/DAY
     Route: 047
  24. SIROLIMUS [Concomitant]
     Active Substance: SIROLIMUS
     Indication: Heart transplant
     Dosage: UNK (ON HOLD STARTING 02SEP FOR SURGERY)
  25. TOPROL XL [Concomitant]
     Active Substance: METOPROLOL SUCCINATE
     Indication: Secondary hypertension
     Dosage: 50 MG, DAILY
     Route: 048
  26. TOPROL XL [Concomitant]
     Active Substance: METOPROLOL SUCCINATE
     Indication: Renal disorder
  27. TYLENOL PM [Concomitant]
     Active Substance: ACETAMINOPHEN\DIPHENHYDRAMINE
     Indication: Sleep disorder
     Dosage: 1 DF, AS NEEDED (NIGHTLY, DIPHENHYDRAMINE HYDROCHLORIDE: 25MG, PARACETAMOL: 500MG)
     Route: 048
  28. TYLENOL 8HR [Concomitant]
     Active Substance: ACETAMINOPHEN
     Indication: Arthritis
     Dosage: 650 MG, 2X/DAY
     Route: 048
  29. VITAMIN D3 [Concomitant]
     Active Substance: CHOLECALCIFEROL
     Indication: Vitamin D deficiency
     Dosage: 50 UG, DAILY (1000 UNITS)
     Route: 048
  30. ZETIA [Concomitant]
     Active Substance: EZETIMIBE
     Indication: Hyperlipidaemia
     Dosage: 10 MG, DAILY
     Route: 048
  31. ZESTRIL [Concomitant]
     Active Substance: LISINOPRIL
     Indication: Secondary hypertension
     Dosage: 5 MG, DAILY
     Route: 048
  32. ZESTRIL [Concomitant]
     Active Substance: LISINOPRIL
     Indication: Renal disorder
  33. ZYLOPRIM [Concomitant]
     Active Substance: ALLOPURINOL
     Dosage: 100 MG, 1X/DAY(TAKE 100 MG BY MOUTH EVERY EVENING AT 1900)
     Route: 048

REACTIONS (1)
  - Viral cardiomyopathy [Recovered/Resolved]
